FAERS Safety Report 8130787 (Version 3)
Quarter: 2013Q4

REPORT INFORMATION
  Report Type: Spontaneous
  Country: US (occurrence: US)
  Receive Date: 20110912
  Receipt Date: 20131101
  Transmission Date: 20140711
  Serious: Yes (Other)
  Sender: FDA-Public Use
  Company Number: US-BAYER-2011-081941

PATIENT
  Age: 22 Year
  Sex: Female
  Weight: 73.47 kg

DRUGS (3)
  1. YAZ [Suspect]
     Indication: CONTRACEPTION
     Dosage: UNK
     Dates: start: 200701, end: 200712
  2. ALEVE [Concomitant]
  3. MACROBID [Concomitant]

REACTIONS (4)
  - Cholecystitis [None]
  - Gallbladder non-functioning [None]
  - Injury [None]
  - Pain [None]
